FAERS Safety Report 5387650-3 (Version None)
Quarter: 2007Q3

REPORT INFORMATION
  Report Type: 
  Country: None (occurrence: None)
  Receive Date: 20070712
  Receipt Date: 20070712
  Transmission Date: 20080115
  Serious: Yes (Hospitalization)
  Sender: FDA-Public Use
  Company Number: None

PATIENT
  Age: 78 Year
  Sex: Male

DRUGS (10)
  1. WARFARIN SODIUM [Suspect]
     Indication: PULMONARY EMBOLISM
  2. BICALUTAMIDE [Suspect]
     Indication: PROSTATE CANCER
  3. COUMADIN [Concomitant]
  4. HYDROCHLOROTHIAZIDE [Concomitant]
  5. NORVASC [Concomitant]
  6. DIOVAN HCT [Concomitant]
  7. FLOMAX [Concomitant]
  8. COLACE [Concomitant]
  9. TYLENOL W/ CODEINE [Concomitant]
  10. CASODEX [Concomitant]

REACTIONS (5)
  - ANAEMIA [None]
  - COAGULOPATHY [None]
  - DRUG INTERACTION [None]
  - HAEMATURIA [None]
  - INTERNATIONAL NORMALISED RATIO INCREASED [None]
